FAERS Safety Report 4914256-X (Version None)
Quarter: 2006Q1

REPORT INFORMATION
  Report Type: 
  Country: None (occurrence: None)
  Receive Date: 20060213
  Receipt Date: 20060131
  Transmission Date: 20060701
  Serious: Yes (Death, Life-Threatening)
  Sender: FDA-Public Use
  Company Number: HQWYE704423NOV05

PATIENT
  Age: 74 Year
  Sex: Male

DRUGS (15)
  1. AMIODARONE HCL [Suspect]
     Indication: ATRIAL FIBRILLATION
     Dosage: 200 MG 1X PER 1 DAY ORAL; 100  MG 1X PER 1 DAY ORAL; 50 MG 1X PER 1 DAY ORAL
     Route: 049
     Dates: start: 20040322, end: 20050908
  2. AMIODARONE HCL [Suspect]
     Indication: PROPHYLAXIS
     Dosage: 200 MG 1X PER 1 DAY ORAL; 100  MG 1X PER 1 DAY ORAL; 50 MG 1X PER 1 DAY ORAL
     Route: 049
     Dates: start: 20040322, end: 20050908
  3. AMIODARONE HCL [Suspect]
     Indication: ATRIAL FIBRILLATION
     Dosage: 200 MG 1X PER 1 DAY ORAL; 100  MG 1X PER 1 DAY ORAL; 50 MG 1X PER 1 DAY ORAL
     Route: 049
     Dates: start: 20050909, end: 20050927
  4. AMIODARONE HCL [Suspect]
     Indication: PROPHYLAXIS
     Dosage: 200 MG 1X PER 1 DAY ORAL; 100  MG 1X PER 1 DAY ORAL; 50 MG 1X PER 1 DAY ORAL
     Route: 049
     Dates: start: 20050909, end: 20050927
  5. AMIODARONE HCL [Suspect]
     Indication: ATRIAL FIBRILLATION
     Dosage: 200 MG 1X PER 1 DAY ORAL; 100  MG 1X PER 1 DAY ORAL; 50 MG 1X PER 1 DAY ORAL
     Route: 049
     Dates: start: 20050909, end: 20051005
  6. AMIODARONE HCL [Suspect]
     Indication: PROPHYLAXIS
     Dosage: 200 MG 1X PER 1 DAY ORAL; 100  MG 1X PER 1 DAY ORAL; 50 MG 1X PER 1 DAY ORAL
     Route: 049
     Dates: start: 20050909, end: 20051005
  7. ENCERON                     (IFENPRODIL TARTRATE) [Concomitant]
  8. LANSOPRAZOLE [Concomitant]
  9. WARFARIN SODIUM [Concomitant]
  10. RIZE (CLOTIAZEPAM) [Concomitant]
  11. MAGNESIUM SULFATE [Concomitant]
  12. LASIX [Concomitant]
  13. ALLOPURINOL [Concomitant]
  14. MOHRUS                     (KETOPROFEN) [Concomitant]
  15. BROTIZOLAM                 (BROTIZOLAM) [Concomitant]

REACTIONS (11)
  - CONDITION AGGRAVATED [None]
  - DECREASED APPETITE [None]
  - DRUG INEFFECTIVE [None]
  - HEPATIC FAILURE [None]
  - HEPATIC FUNCTION ABNORMAL [None]
  - HYPONATRAEMIA [None]
  - IRON DEFICIENCY ANAEMIA [None]
  - LIVER DISORDER [None]
  - PNEUMONIA ASPIRATION [None]
  - RESPIRATORY FAILURE [None]
  - SINUS BRADYCARDIA [None]
